FAERS Safety Report 17486110 (Version 1)
Quarter: 2020Q1

REPORT INFORMATION
  Report Type: Report from Study
  Country: None (occurrence: US)
  Receive Date: 20200303
  Receipt Date: 20200303
  Transmission Date: 20200409
  Serious: Yes (Other)
  Sender: FDA-Public Use
  Company Number: US-ABBVIE-19K-163-2999363-00

PATIENT
  Age: 73 Year
  Sex: Female
  Weight: 65.83 kg

DRUGS (4)
  1. HUMIRA [Suspect]
     Active Substance: ADALIMUMAB
     Indication: RHEUMATOID ARTHRITIS
     Route: 058
     Dates: end: 201908
  2. FORTEO [Concomitant]
     Active Substance: TERIPARATIDE
     Indication: BONE LOSS
  3. HUMIRA [Suspect]
     Active Substance: ADALIMUMAB
     Route: 058
     Dates: start: 2019, end: 202001
  4. HUMIRA [Suspect]
     Active Substance: ADALIMUMAB
     Route: 058
     Dates: start: 202002

REACTIONS (5)
  - Device issue [Unknown]
  - Cartilage atrophy [Unknown]
  - Knee arthroplasty [Unknown]
  - Inappropriate schedule of product administration [Unknown]
  - Joint instability [Unknown]

NARRATIVE: CASE EVENT DATE: 20190814
